FAERS Safety Report 9556168 (Version 1)
Quarter: 2013Q3

REPORT INFORMATION
  Report Type: Spontaneous
  Country: GB (occurrence: GB)
  Receive Date: 20130926
  Receipt Date: 20130926
  Transmission Date: 20140515
  Serious: Yes (Hospitalization)
  Sender: FDA-Public Use
  Company Number: GB-TEVA-433913ISR

PATIENT
  Age: 20 Year
  Sex: Male

DRUGS (4)
  1. PARACETAMOL [Suspect]
     Indication: INTENTIONAL OVERDOSE
     Route: 048
  2. CITALOPRAM [Suspect]
     Indication: INTENTIONAL OVERDOSE
     Route: 048
  3. CORICIDIN [Suspect]
     Indication: INTENTIONAL OVERDOSE
     Route: 048
  4. FLUOXETINE [Concomitant]
     Dosage: 20 MILLIGRAM DAILY;
     Route: 065

REACTIONS (3)
  - Toxicity to various agents [Recovering/Resolving]
  - Intentional overdose [Recovering/Resolving]
  - Alanine aminotransferase increased [Recovering/Resolving]
